FAERS Safety Report 5213100-3 (Version None)
Quarter: 2007Q1

REPORT INFORMATION
  Report Type: 
  Country: None (occurrence: None)
  Receive Date: 20070116
  Receipt Date: 20070105
  Transmission Date: 20070707
  Serious: Yes (Disabling, Other)
  Sender: FDA-Public Use
  Company Number: S05-USA-04011-01

PATIENT
  Age: 77 Year
  Sex: Male
  Weight: 68.0396 kg

DRUGS (21)
  1. NAMENDA [Suspect]
     Indication: DEMENTIA ALZHEIMER'S TYPE
     Dosage: 10 MG BID PO
     Route: 048
     Dates: start: 20040101, end: 20050708
  2. NAMENDA [Suspect]
     Indication: DEMENTIA ALZHEIMER'S TYPE
     Dosage: 5 MG QD PO
     Route: 048
     Dates: start: 20040801, end: 20040101
  3. NAMENDA [Suspect]
     Indication: DEMENTIA ALZHEIMER'S TYPE
     Dosage: 5 MG BID PO
     Route: 048
     Dates: start: 20040101, end: 20040101
  4. NAMENDA [Suspect]
     Indication: DEMENTIA ALZHEIMER'S TYPE
     Dosage: 15 MG QD PO
     Route: 048
     Dates: start: 20040101, end: 20040101
  5. DIGOXIN [Suspect]
     Indication: ATRIAL FIBRILLATION
     Dosage: 250 MCG QD
     Dates: start: 20050515, end: 20050708
  6. DIGOXIN [Suspect]
     Indication: ATRIAL FIBRILLATION
     Dosage: 125 MCG QD
     Dates: start: 20050722
  7. ALAMAG (ALUMINUM/MAGNESIUM/SIMETHICONE) [Concomitant]
  8. ARICEPT [Concomitant]
  9. ASPIRIN [Concomitant]
  10. DILTIAZEM HCL [Concomitant]
  11. XALATAN [Concomitant]
  12. DOCUSATE SODIUM [Concomitant]
  13. FERROUS SULFATE TAB [Concomitant]
  14. LORATADINE [Concomitant]
  15. POTASSIUM ACETATE [Concomitant]
  16. PRILOSEC [Concomitant]
  17. TRIAMTERENE AND HYDROCHLOROTHIAZIDE [Concomitant]
  18. LOTENSIN (BENAZEPRIL HDYROCHLORIDE) [Concomitant]
  19. MAALOX (ALUMINUM/MAGNESIUMHYDROXIDE) [Concomitant]
  20. ACETAMINOPHEN [Concomitant]
  21. MILK OF MAGNESIA [Concomitant]

REACTIONS (5)
  - ANAEMIA [None]
  - CEREBROVASCULAR ACCIDENT [None]
  - CONDITION AGGRAVATED [None]
  - OCCULT BLOOD POSITIVE [None]
  - THERAPEUTIC AGENT TOXICITY [None]
